FAERS Safety Report 6633199-7 (Version None)
Quarter: 2010Q1

REPORT INFORMATION
  Report Type: 
  Country: None (occurrence: None)
  Receive Date: 20100312
  Receipt Date: 20100308
  Transmission Date: 20100710
  Serious: Yes (Death, Hospitalization, Other)
  Sender: FDA-Public Use
  Company Number: PHEH2006US02048

PATIENT

DRUGS (11)
  1. ZOMETA [Suspect]
     Dosage: UNK
  2. ATENOLOL [Concomitant]
     Dosage: 50 MG, BID
     Route: 048
  3. VASOTEC [Concomitant]
     Dosage: 5 MG, BID
     Route: 048
  4. ARIMIDEX [Concomitant]
     Dosage: 1 MG, QD
     Route: 048
  5. CARDIZEM CD [Concomitant]
     Dosage: 180 MG, BID
     Route: 048
  6. HALCION [Concomitant]
     Dosage: 0.25 MG, QHS
     Route: 048
  7. COUMADIN [Concomitant]
     Dosage: 3 MG, UNK
     Route: 048
  8. ENALAPRIL MALEATE [Concomitant]
     Dosage: 5 MG, UNK
     Route: 048
  9. LORAZEPAM [Concomitant]
     Dosage: 2 MG, UNK
     Route: 048
  10. TRIAZOLAM [Concomitant]
     Dosage: 0.25 MG, UNK
     Route: 048
  11. CHLORHEXIDINE DENTAL ^ACO^ [Concomitant]
     Dosage: .12 %, UNK
     Route: 048

REACTIONS (21)
  - ABDOMINAL DISTENSION [None]
  - ARTHRALGIA [None]
  - ATRIAL FIBRILLATION [None]
  - BACK PAIN [None]
  - DEATH [None]
  - DENTURE WEARER [None]
  - DRUG TOXICITY [None]
  - FLATULENCE [None]
  - GROIN PAIN [None]
  - HERNIA [None]
  - INFECTION [None]
  - NASAL CONGESTION [None]
  - NERVOUSNESS [None]
  - OEDEMA PERIPHERAL [None]
  - OSTEITIS [None]
  - OSTEONECROSIS [None]
  - RENAL FAILURE ACUTE [None]
  - RHINORRHOEA [None]
  - SEPTIC SHOCK [None]
  - TOOTH EXTRACTION [None]
  - UROSEPSIS [None]
